FAERS Safety Report 19768370 (Version 1)
Quarter: 2021Q3

REPORT INFORMATION
  Report Type: Spontaneous
  Country: US (occurrence: US)
  Receive Date: 20210831
  Receipt Date: 20210831
  Transmission Date: 20211014
  Serious: Yes (Death)
  Sender: FDA-Public Use
  Company Number: None

PATIENT
  Age: 57 Year
  Sex: Female
  Weight: 81.45 kg

DRUGS (2)
  1. LIDOCAINE. [Suspect]
     Active Substance: LIDOCAINE
     Indication: SURGERY
     Dosage: ?          OTHER FREQUENCY:USED DURING SURGER;?
     Route: 058
     Dates: start: 20210312
  2. LIDOCAINE 1% [Concomitant]
     Active Substance: LIDOCAINE
     Dates: start: 20200312

REACTIONS (3)
  - Oxygen saturation decreased [None]
  - Cardio-respiratory arrest [None]
  - Local anaesthetic systemic toxicity [None]

NARRATIVE: CASE EVENT DATE: 20200312
